FAERS Safety Report 15386078 (Version 2)
Quarter: 2019Q4

REPORT INFORMATION
  Report Type: Report from Study
  Country: JP (occurrence: JP)
  Receive Date: 20180914
  Receipt Date: 20191211
  Transmission Date: 20200122
  Serious: Yes (Death, Life-Threatening, Hospitalization, Disabling, Other)
  Sender: FDA-Public Use
  Company Number: JP-ACTELION-A-CH2018-178501

PATIENT
  Age: 70 Year
  Sex: Female

DRUGS (5)
  1. UPTRAVI [Concomitant]
     Active Substance: SELEXIPAG
  2. REVATIO [Concomitant]
     Active Substance: SILDENAFIL CITRATE
  3. OXYGEN. [Concomitant]
     Active Substance: OXYGEN
  4. CEFTRIAXONE SODIUM. [Suspect]
     Active Substance: CEFTRIAXONE SODIUM
     Indication: PNEUMONIA
     Dosage: UNK
     Route: 065
     Dates: start: 20180602
  5. OPSUMIT [Suspect]
     Active Substance: MACITENTAN
     Indication: PULMONARY ARTERIAL HYPERTENSION
     Dosage: 10 MG, QD
     Route: 048
     Dates: start: 20170724, end: 20180809

REACTIONS (18)
  - Urine output decreased [Not Recovered/Not Resolved]
  - Pseudomembranous colitis [Recovered/Resolved]
  - Hypotension [Unknown]
  - Surgery [Unknown]
  - Hepatic cirrhosis [Not Recovered/Not Resolved]
  - Cardiac failure [Fatal]
  - Oedema peripheral [Fatal]
  - Cell-free and concentrated ascites reinfusion therapy [Unknown]
  - Condition aggravated [Fatal]
  - Ascites [Not Recovered/Not Resolved]
  - Pneumonia [Recovered/Resolved]
  - Blood pressure decreased [Recovering/Resolving]
  - Renal failure [Not Recovered/Not Resolved]
  - Pulmonary congestion [Fatal]
  - Abdominal cavity drainage [Unknown]
  - Pulmonary arterial hypertension [Fatal]
  - Femur fracture [Recovering/Resolving]
  - Diarrhoea [Recovered/Resolved]

NARRATIVE: CASE EVENT DATE: 20180510
